FAERS Safety Report 12449971 (Version 1)
Quarter: 2016Q2

REPORT INFORMATION
  Report Type: Spontaneous
  Country: FR (occurrence: FR)
  Receive Date: 20160609
  Receipt Date: 20160609
  Transmission Date: 20160815
  Serious: Yes (Hospitalization)
  Sender: FDA-Public Use
  Company Number: FR-ASTRAZENECA-2016SE59547

PATIENT
  Age: 29894 Day
  Sex: Female

DRUGS (10)
  1. VALSARTAN. [Concomitant]
     Active Substance: VALSARTAN
  2. ZOPICLONE [Suspect]
     Active Substance: ZOPICLONE
     Route: 048
     Dates: end: 20140808
  3. INEXIUM [Suspect]
     Active Substance: ESOMEPRAZOLE
     Route: 048
     Dates: start: 2011, end: 20140806
  4. LAROXYL [Suspect]
     Active Substance: AMITRIPTYLINE
     Route: 048
     Dates: start: 20140812
  5. ACARBOSE. [Concomitant]
     Active Substance: ACARBOSE
  6. LAROXYL [Suspect]
     Active Substance: AMITRIPTYLINE
     Route: 048
     Dates: start: 20110216, end: 20140728
  7. GLUCOPHAGE [Concomitant]
     Active Substance: METFORMIN HYDROCHLORIDE
     Dosage: 500 MG
  8. KARDEGIC [Concomitant]
     Active Substance: ASPIRIN LYSINE
     Dosage: 75 MG
  9. DEROXAT [Suspect]
     Active Substance: PAROXETINE HYDROCHLORIDE
     Route: 048
     Dates: start: 2011, end: 20140805
  10. CACIT VITAMINE D 3 [Concomitant]

REACTIONS (5)
  - Hyponatraemia [Unknown]
  - Faecaloma [Unknown]
  - Urinary retention [Recovered/Resolved]
  - Confusional state [Recovered/Resolved]
  - Constipation [Recovered/Resolved]

NARRATIVE: CASE EVENT DATE: 20140728
